FAERS Safety Report 9915969 (Version 1)
Quarter: 2014Q1

REPORT INFORMATION
  Report Type: Spontaneous
  Country: TR (occurrence: None)
  Receive Date: 20140219
  Receipt Date: 20140219
  Transmission Date: 20141002
  Serious: Yes (Hospitalization)
  Sender: FDA-Public Use
  Company Number: B0969975A

PATIENT
  Age: 26 Year
  Sex: Female

DRUGS (4)
  1. ELTROMBOPAG [Suspect]
     Indication: IMMUNE THROMBOCYTOPENIC PURPURA
  2. ORAL CONTRACEPTIVE NOS [Suspect]
     Indication: MENORRHAGIA
     Route: 048
  3. DANAZOL [Suspect]
     Indication: IMMUNE THROMBOCYTOPENIC PURPURA
  4. VINCRISTINE [Suspect]
     Indication: IMMUNE THROMBOCYTOPENIC PURPURA
     Dosage: 1.5 MG SINGLE DOSE/UNKNOWN

REACTIONS (5)
  - Intracardiac thrombus [None]
  - Thrombocytopenia [None]
  - Dyspnoea [None]
  - Drug interaction [None]
  - Pulmonary artery thrombosis [None]
